FAERS Safety Report 23967010 (Version 2)
Quarter: 2024Q2

REPORT INFORMATION
  Report Type: Spontaneous
  Country: RO (occurrence: RO)
  Receive Date: 20240612
  Receipt Date: 20240628
  Transmission Date: 20240716
  Serious: Yes (Other)
  Sender: FDA-Public Use
  Company Number: RO-Zentiva-2024-ZT-010852

PATIENT
  Sex: Male

DRUGS (4)
  1. QUETIAPINE [Suspect]
     Active Substance: QUETIAPINE
     Indication: Product used for unknown indication
     Dosage: 300 MILLIGRAM, QD
     Route: 048
     Dates: start: 2018, end: 202401
  2. QUETIAPINE [Suspect]
     Active Substance: QUETIAPINE
     Dosage: THE DOSE WAS GRADUALLY REDUCED
     Route: 048
     Dates: start: 202401
  3. LEVETIRACETAM [Concomitant]
     Active Substance: LEVETIRACETAM
     Indication: Epilepsy
     Dosage: UNK
     Route: 065
  4. VALPROATE SODIUM [Concomitant]
     Active Substance: VALPROATE SODIUM
     Indication: Epilepsy
     Dosage: UNK
     Route: 065
     Dates: start: 2006

REACTIONS (16)
  - Seizure [Unknown]
  - Urinary retention [Unknown]
  - Condition aggravated [Unknown]
  - Gastritis [Unknown]
  - Urinary incontinence [Unknown]
  - Nasal congestion [Unknown]
  - Dysuria [Unknown]
  - Pollakiuria [Unknown]
  - Painful erection [Unknown]
  - Priapism [Unknown]
  - Increased appetite [Unknown]
  - Weight increased [Unknown]
  - Dyspnoea [Unknown]
  - Somnolence [Unknown]
  - Peripheral swelling [Unknown]
  - Restless legs syndrome [Unknown]

NARRATIVE: CASE EVENT DATE: 20180101
